FAERS Safety Report 6104419-2 (Version None)
Quarter: 2009Q1

REPORT INFORMATION
  Report Type: 
  Country: None (occurrence: None)
  Receive Date: 20090305
  Receipt Date: 20090224
  Transmission Date: 20090719
  Serious: Yes (Other)
  Sender: FDA-Public Use
  Company Number: IT-AMGEN-UK335300

PATIENT
  Sex: Male

DRUGS (6)
  1. VECTIBIX [Suspect]
     Indication: COLORECTAL CANCER
     Route: 042
     Dates: start: 20090102
  2. BENERVA [Concomitant]
     Route: 048
     Dates: start: 20070101
  3. CONCOR [Concomitant]
     Route: 048
     Dates: start: 20000101
  4. OMNIC [Concomitant]
     Route: 048
     Dates: start: 20000101
  5. ZANEDIP [Concomitant]
     Route: 048
     Dates: start: 20000101
  6. LACTOBACILLUS BIFIDUS, LYOPHILIZED [Concomitant]

REACTIONS (2)
  - ECZEMA [None]
  - FOLLICULITIS [None]
